FAERS Safety Report 10589224 (Version 1)
Quarter: 2014Q4

REPORT INFORMATION
  Report Type: Spontaneous
  Country: JP (occurrence: JP)
  Receive Date: 20141118
  Receipt Date: 20141118
  Transmission Date: 20150529
  Serious: Yes (Other)
  Sender: FDA-Public Use
  Company Number: JP-BRISTOL-MYERS SQUIBB COMPANY-21595384

PATIENT
  Age: 76 Year
  Sex: Female

DRUGS (3)
  1. ERBITUX [Suspect]
     Active Substance: CETUXIMAB
     Indication: TONGUE NEOPLASM MALIGNANT STAGE UNSPECIFIED
     Route: 041
     Dates: start: 20141029
  2. CISPLATIN. [Concomitant]
     Active Substance: CISPLATIN
     Indication: TONGUE NEOPLASM MALIGNANT STAGE UNSPECIFIED
     Route: 041
     Dates: start: 20141029
  3. 5-FLUOROURACIL [Concomitant]
     Active Substance: FLUOROURACIL
     Indication: TONGUE NEOPLASM MALIGNANT STAGE UNSPECIFIED
     Route: 041
     Dates: start: 20141029

REACTIONS (4)
  - Loss of consciousness [Unknown]
  - Anaemia [Unknown]
  - Blood pressure decreased [Unknown]
  - Heart rate decreased [Unknown]

NARRATIVE: CASE EVENT DATE: 20141101
